FAERS Safety Report 5115057-2 (Version None)
Quarter: 2006Q3

REPORT INFORMATION
  Report Type: 
  Country: None (occurrence: None)
  Receive Date: 20060921
  Receipt Date: 20060829
  Transmission Date: 20061208
  Serious: Yes (Disabling, Other)
  Sender: FDA-Public Use
  Company Number: 2006RR-03678

PATIENT
  Sex: Male
  Weight: 74 kg

DRUGS (8)
  1. CIPROFLOXACIN [Suspect]
     Indication: INFECTION
     Dosage: 500 MG, BID, ORAL
     Route: 048
     Dates: start: 20060109, end: 20060119
  2. ASPIRIN [Concomitant]
  3. ATENOLOL [Concomitant]
  4. EPILIM [Concomitant]
  5. LANSOPRAZOLE [Concomitant]
  6. METRONIDAZOLE TABLET 200MG (METRONIDAZOLE) [Concomitant]
  7. SIMVASTATIN [Concomitant]
  8. TEICOPLANIN [Concomitant]

REACTIONS (2)
  - PARAESTHESIA [None]
  - URTICARIA [None]
